FAERS Safety Report 12277502 (Version 10)
Quarter: 2018Q2

REPORT INFORMATION
  Report Type: Spontaneous
  Country: US (occurrence: US)
  Receive Date: 20160418
  Receipt Date: 20180425
  Transmission Date: 20180711
  Serious: No
  Sender: FDA-Public Use
  Company Number: US-ACTELION PHARMACEUTICALS US, INC.-A-NJ2015-128920

PATIENT
  Age: 55 Year
  Sex: Female
  Weight: 99.77 kg

DRUGS (2)
  1. OPSUMIT [Suspect]
     Active Substance: MACITENTAN
     Indication: PULMONARY ARTERIAL HYPERTENSION
     Dosage: 10 MG, QD
     Route: 048
     Dates: start: 20151006
  2. ADCIRCA [Concomitant]
     Active Substance: TADALAFIL

REACTIONS (15)
  - Headache [Unknown]
  - Productive cough [Recovered/Resolved]
  - Malaise [Unknown]
  - Influenza [Unknown]
  - Ear pain [Recovered/Resolved]
  - Diabetes mellitus [Unknown]
  - Throat irritation [Recovered/Resolved]
  - Chronic obstructive pulmonary disease [Recovered/Resolved]
  - Acute sinusitis [Recovered/Resolved]
  - Palpitations [Unknown]
  - Dyspnoea [Recovered/Resolved]
  - Pyrexia [Recovered/Resolved]
  - Bronchitis [Unknown]
  - Dyspepsia [Unknown]
  - Respiratory tract congestion [Recovered/Resolved]

NARRATIVE: CASE EVENT DATE: 201604
